FAERS Safety Report 9774249 (Version 3)
Quarter: 2014Q1

REPORT INFORMATION
  Report Type: Spontaneous
  Country: DE (occurrence: DE)
  Receive Date: 20131220
  Receipt Date: 20140130
  Transmission Date: 20141002
  Serious: Yes (Death, Hospitalization)
  Sender: FDA-Public Use
  Company Number: DE-JNJFOC-20131205763

PATIENT
  Sex: Male
  Weight: 74 kg

DRUGS (4)
  1. ZYTIGA [Suspect]
     Indication: PROSTATE CANCER
     Route: 048
     Dates: start: 20131022, end: 20131104
  2. PREDNISOLONE [Concomitant]
     Route: 048
     Dates: start: 20131021, end: 20131104
  3. SPASMEX [Concomitant]
     Indication: MICTURITION DISORDER
     Dosage: 1-0-1, START DATE 14-OCT OF UNSPECIFID YEARS
     Route: 048
     Dates: end: 20131104
  4. ASS [Concomitant]
     Indication: PERIPHERAL VASCULAR DISORDER
     Dosage: 1-0-1
     Route: 065
     Dates: end: 20131104

REACTIONS (2)
  - Prostate cancer [Fatal]
  - Coronary artery disease [Unknown]
